FAERS Safety Report 9075021 (Version 1)
Quarter: 2013Q1

REPORT INFORMATION
  Report Type: Report from Study
  Country: US (occurrence: US)
  Receive Date: 20130128
  Receipt Date: 20130128
  Transmission Date: 20140127
  Serious: No
  Sender: FDA-Public Use
  Company Number: US-ABBOTT-12P-163-0890615-00

PATIENT
  Age: 18 None
  Sex: Female
  Weight: 67.19 kg

DRUGS (16)
  1. HUMIRA 40 MG/0.8 ML PEN [Suspect]
     Indication: CROHN^S DISEASE
     Dosage: 1ST LOADING DOSE, 4 PENS (160 MG) TOTAL
     Route: 058
     Dates: start: 20111123, end: 20111123
  2. HUMIRA 40 MG/0.8 ML PEN [Suspect]
     Dosage: 2ND LOADING DOSE, ONCE, TWO INJECTIONS
     Route: 058
  3. HUMIRA 40 MG/0.8 ML PEN [Suspect]
     Route: 058
  4. DILAUDID [Concomitant]
     Indication: PRODUCT USED FOR UNKNOWN INDICATION
  5. LANSOPRAZOLE [Concomitant]
     Indication: PRODUCT USED FOR UNKNOWN INDICATION
  6. KLONOPIN [Concomitant]
     Indication: DEPRESSION
  7. KLONOPIN [Concomitant]
     Indication: ANXIETY
  8. MERCAPTOPURINE [Concomitant]
     Indication: CROHN^S DISEASE
     Dosage: WILL STOP MEDICATION AT END OF WEEK
  9. MIRALAX [Concomitant]
     Indication: PRODUCT USED FOR UNKNOWN INDICATION
  10. NUVARING [Concomitant]
     Indication: CONTRACEPTION
  11. PHENERGAN [Concomitant]
     Indication: PRODUCT USED FOR UNKNOWN INDICATION
  12. TRAZODONE [Concomitant]
     Indication: PRODUCT USED FOR UNKNOWN INDICATION
  13. TRILEPTAL [Concomitant]
     Indication: DEPRESSION
  14. TRILEPTAL [Concomitant]
     Indication: ANXIETY
  15. ZOFRAN [Concomitant]
     Indication: PRODUCT USED FOR UNKNOWN INDICATION
  16. AMITIZA [Concomitant]
     Indication: PRODUCT USED FOR UNKNOWN INDICATION

REACTIONS (4)
  - Pharyngitis streptococcal [Recovering/Resolving]
  - Diarrhoea [Recovering/Resolving]
  - Oropharyngeal pain [Recovered/Resolved]
  - Throat irritation [Recovered/Resolved]
